FAERS Safety Report 10440916 (Version 1)
Quarter: 2014Q3

REPORT INFORMATION
  Report Type: Spontaneous
  Country: US (occurrence: None)
  Receive Date: 20140908
  Receipt Date: 20140908
  Transmission Date: 20150326
  Serious: Yes (Other)
  Sender: FDA-Public Use
  Company Number: None

PATIENT
  Age: 54 Year
  Sex: Female
  Weight: 97.07 kg

DRUGS (1)
  1. SERTRALINE 50 MG [Suspect]
     Active Substance: SERTRALINE HYDROCHLORIDE
     Indication: DEPRESSION
     Dates: start: 20140521, end: 20140621

REACTIONS (5)
  - Apathy [None]
  - Mood altered [None]
  - Asthenia [None]
  - Drug ineffective [None]
  - Condition aggravated [None]

NARRATIVE: CASE EVENT DATE: 20140521
